FAERS Safety Report 22267018 (Version 1)
Quarter: 2023Q2

REPORT INFORMATION
  Report Type: Spontaneous
  Country: US (occurrence: None)
  Receive Date: 20230427
  Receipt Date: 20230427
  Transmission Date: 20230721
  Serious: No
  Sender: FDA-Public Use
  Company Number: None

PATIENT
  Sex: Female

DRUGS (1)
  1. REMICADE [Suspect]
     Active Substance: INFLIXIMAB
     Indication: Rheumatoid arthritis
     Dosage: OTHER FREQUENCY : EVERY 8 WEEKS;?
     Route: 042
     Dates: start: 202203

REACTIONS (4)
  - Pain in extremity [None]
  - Pain in extremity [None]
  - Drug ineffective [None]
  - Therapy change [None]
